FAERS Safety Report 8333888-2 (Version None)
Quarter: 2012Q2

REPORT INFORMATION
  Report Type: 
  Country: None (occurrence: None)
  Receive Date: 20120503
  Receipt Date: 20120420
  Transmission Date: 20120825
  Serious: Yes (Other)
  Sender: FDA-Public Use
  Company Number: FR-ASTRAZENECA-2012SE12683

PATIENT
  Age: 42 Year
  Sex: Female

DRUGS (2)
  1. PAROXETINE HYDROCHLORIDE [Concomitant]
     Indication: MAJOR DEPRESSION
     Dates: start: 20111212
  2. QUETIAPINE FUMARATE [Suspect]
     Indication: BIPOLAR I DISORDER
     Route: 048
     Dates: start: 20120105, end: 20120215

REACTIONS (2)
  - MATERNAL EXPOSURE DURING PREGNANCY [None]
  - ABORTION SPONTANEOUS [None]
